FAERS Safety Report 23186059 (Version 1)
Quarter: 2023Q4

REPORT INFORMATION
  Report Type: Spontaneous
  Country: US (occurrence: None)
  Receive Date: 20231114
  Receipt Date: 20231114
  Transmission Date: 20240110
  Serious: Yes (Hospitalization)
  Sender: FDA-Public Use
  Company Number: None

PATIENT
  Sex: Male

DRUGS (1)
  1. LENALIDOMIDE [Suspect]
     Active Substance: LENALIDOMIDE
     Indication: Hodgkin^s disease
     Dosage: OTHER FREQUENCY : 1TIMEFOR21DAYS;?
     Route: 048
     Dates: start: 202309

REACTIONS (2)
  - Malaise [None]
  - Therapy interrupted [None]
